FAERS Safety Report 8165102-5 (Version None)
Quarter: 2012Q1

REPORT INFORMATION
  Report Type: 
  Country: None (occurrence: None)
  Receive Date: 20120227
  Receipt Date: 20120222
  Transmission Date: 20120608
  Serious: Yes (Hospitalization)
  Sender: FDA-Public Use
  Company Number: GB-ACCORD-012483

PATIENT
  Age: 24 Year
  Sex: Female
  Weight: 40 kg

DRUGS (7)
  1. LANSOPRAZOLE [Concomitant]
  2. MYCOPHENOLATE MOFETIL [Suspect]
     Route: 048
     Dates: start: 20120206
  3. LEVOTHYROXINE SODIUM [Concomitant]
  4. TACROLIMUS [Suspect]
     Route: 048
     Dates: start: 20120206
  5. ASPIRIN [Concomitant]
  6. AMLODIPINE [Concomitant]
  7. PREDNISOLONE [Concomitant]
     Dosage: 5MG, UNK

REACTIONS (2)
  - BLOOD CREATININE DECREASED [None]
  - INTENTIONAL OVERDOSE [None]
